FAERS Safety Report 12929499 (Version 2)
Quarter: 2017Q1

REPORT INFORMATION
  Report Type: Spontaneous
  Country: US (occurrence: US)
  Receive Date: 20161110
  Receipt Date: 20170303
  Transmission Date: 20170428
  Serious: No
  Sender: FDA-Public Use
  Company Number: US-GLAXOSMITHKLINE-US2016164597

PATIENT
  Age: 70 Year
  Sex: Female

DRUGS (1)
  1. BREO ELLIPTA [Suspect]
     Active Substance: FLUTICASONE FUROATE\VILANTEROL TRIFENATATE
     Indication: ASTHMA
     Dosage: 1 PUFF(S), 1D
     Route: 055
     Dates: start: 20161025

REACTIONS (5)
  - Circumstance or information capable of leading to medication error [Unknown]
  - Drug dispensing error [Recovered/Resolved]
  - Product packaging confusion [Unknown]
  - Intercepted medication error [Recovered/Resolved]
  - Drug prescribing error [Recovered/Resolved]
